FAERS Safety Report 4732660-X (Version None)
Quarter: 2005Q3

REPORT INFORMATION
  Report Type: 
  Country: None (occurrence: None)
  Receive Date: 20050801
  Receipt Date: 20050728
  Transmission Date: 20060218
  Serious: Yes (Hospitalization, Other)
  Sender: FDA-Public Use
  Company Number: 200410577BFR

PATIENT
  Sex: Male

DRUGS (2)
  1. CIPROFLOXACIN [Suspect]
     Indication: DIARRHOEA INFECTIOUS
     Dosage: INTRAVENOUS
     Route: 042
  2. CIPROFLOXACIN [Suspect]
     Indication: PYREXIA
     Dosage: INTRAVENOUS
     Route: 042

REACTIONS (8)
  - ASTHENIA [None]
  - BALANCE DISORDER [None]
  - CONFUSIONAL STATE [None]
  - CONVULSION [None]
  - DIABETIC VASCULAR DISORDER [None]
  - FALL [None]
  - PARALYSIS [None]
  - TREMOR [None]
